FAERS Safety Report 9032243 (Version 1)
Quarter: 2013Q1

REPORT INFORMATION
  Report Type: Spontaneous
  Country: US (occurrence: US)
  Receive Date: 20130122
  Receipt Date: 20130122
  Transmission Date: 20140127
  Serious: Yes (Other)
  Sender: FDA-Public Use
  Company Number: US-NOVOPROD-369019

PATIENT
  Age: 74 Year
  Sex: Female
  Weight: 86.17 kg

DRUGS (2)
  1. NOVOLOG FLEXPEN [Suspect]
     Indication: TYPE 2 DIABETES MELLITUS
     Dosage: THREE DOSES A DAY, SPLIT AS 20 UNITS, 30 UNITS AND 33 UNITS DAILY
     Route: 058
     Dates: start: 2010
  2. LANTUS [Suspect]
     Indication: TYPE 2 DIABETES MELLITUS
     Dosage: 70 UNITS DAILY
     Route: 058
     Dates: start: 2010

REACTIONS (4)
  - Diabetic retinopathy [Not Recovered/Not Resolved]
  - Urinary tract infection [Not Recovered/Not Resolved]
  - Sensory loss [Not Recovered/Not Resolved]
  - Glycosylated haemoglobin increased [Not Recovered/Not Resolved]
